FAERS Safety Report 22287567 (Version 23)
Quarter: 2023Q4

REPORT INFORMATION
  Report Type: Report from Study
  Country: US (occurrence: US)
  Receive Date: 20230505
  Receipt Date: 20231010
  Transmission Date: 20240110
  Serious: Yes (Hospitalization, Disabling, Other)
  Sender: FDA-Public Use
  Company Number: US-ABBVIE-4753400

PATIENT
  Sex: Male
  Weight: 66 kg

DRUGS (29)
  1. MAVYRET [Suspect]
     Active Substance: GLECAPREVIR\PIBRENTASVIR
     Indication: Hepatic cirrhosis
     Dosage: TIME INTERVAL: 0.33333333 DAYS: 100MG-40MG: 3TABLETS?END DATE -2019
     Route: 048
     Dates: start: 20190809
  2. MAVYRET [Suspect]
     Active Substance: GLECAPREVIR\PIBRENTASVIR
     Indication: Hepatic cirrhosis
     Dosage: TIME INTERVAL: 0.33333333 DAYS: 100 MG-40 MG?LAST ADMINISTRATION DATE 2019
     Route: 048
     Dates: start: 20190717
  3. MAVYRET [Suspect]
     Active Substance: GLECAPREVIR\PIBRENTASVIR
     Indication: Hepatic cirrhosis
     Route: 048
     Dates: start: 201907, end: 201907
  4. MAVYRET [Suspect]
     Active Substance: GLECAPREVIR\PIBRENTASVIR
     Indication: Hepatic cirrhosis
     Route: 048
     Dates: start: 202112, end: 202203
  5. MAVYRET [Suspect]
     Active Substance: GLECAPREVIR\PIBRENTASVIR
     Indication: Hepatic cirrhosis
     Route: 048
     Dates: start: 20190908, end: 201911
  6. MAVYRET [Suspect]
     Active Substance: GLECAPREVIR\PIBRENTASVIR
     Indication: Hepatic cirrhosis
     Dosage: LAST ADMIN DATE:2019
     Route: 048
  7. ATIVAN [Concomitant]
     Active Substance: LORAZEPAM
     Indication: Product used for unknown indication
     Dosage: 1 TAB BY ORAL ROUTE EVERYDAY AS NEEDED, 2MG TABLET
     Route: 048
     Dates: start: 20210421
  8. AMLODIPINE [Concomitant]
     Active Substance: AMLODIPINE BESYLATE
     Indication: Product used for unknown indication
     Dosage: AMLODIPINE 2.5 MG ?TAKE 1 TABLET BY MOUTH EVERYDAY
     Route: 048
  9. XIFAXAN [Concomitant]
     Active Substance: RIFAXIMIN
     Indication: Product used for unknown indication
     Dosage: 550 MG, 2 TIMES EVERYDAY?TAKE 1 TABLET BY ORAL ROUTE
     Route: 048
     Dates: start: 20190717
  10. MAGNESIUM [Concomitant]
     Active Substance: MAGNESIUM
     Indication: Product used for unknown indication
     Dosage: 200 MG?TAKE 1 TABLET BY ORAL ROUTE DAILY
     Route: 048
  11. MAGNESIUM [Concomitant]
     Active Substance: MAGNESIUM
     Indication: Product used for unknown indication
     Dosage: 200 MG?2 TABLETS DAILY
     Route: 048
  12. LACTULOSE [Concomitant]
     Active Substance: LACTULOSE
     Indication: Product used for unknown indication
     Dosage: 20GM/30ML?TAKE 15 MILLILITER BY ORAL ROUTE EVERYDAY
     Route: 048
     Dates: start: 20190717
  13. ADAPALENE [Concomitant]
     Active Substance: ADAPALENE
     Indication: Product used for unknown indication
     Dosage: 0.1 % TOPICAL GEL?APPLY 1 BY TOPICAL ROUTE TO ENTIRE FACE EVERYDAY FOR ROSACEA
     Route: 061
  14. METRONIDAZOLE [Concomitant]
     Active Substance: METRONIDAZOLE
     Indication: Product used for unknown indication
     Dosage: 0.75 % TOPICAL GEL?APPLY BY TOPICAL ROUTE 2 TIMES EVERYDAY A THIN LAYER TO THE AFFECTED AREAS IN ...
  15. FOLIC ACID [Concomitant]
     Active Substance: FOLIC ACID
     Indication: Product used for unknown indication
     Dosage: 1 TAB, EVERYDAY, 1 MG?TAKE 1 TABLET BY ORAL ROUTE EVERYDAY
     Route: 048
  16. THIAMINE HYDROCHLORIDE [Concomitant]
     Active Substance: THIAMINE HYDROCHLORIDE
     Indication: Product used for unknown indication
  17. HYDROXYZINE PAMOATE [Concomitant]
     Active Substance: HYDROXYZINE PAMOATE
     Indication: Product used for unknown indication
     Dosage: TIME INTERVAL: AS NECESSARY: 50 MG?TAKE 1 BY ORAL ROUTE EVERY SIX HOURS AS NEEDED
     Route: 048
  18. XANAX [Concomitant]
     Active Substance: ALPRAZOLAM
     Indication: Product used for unknown indication
     Dosage: 1MG?TAKE 1 TABLET BY ORAL ROUTE 2 TIMES EVERYDAY AS NEEDED
     Route: 048
  19. VIAGRA [Concomitant]
     Active Substance: SILDENAFIL CITRATE
     Indication: Product used for unknown indication
     Dosage: TIME INTERVAL: AS NECESSARY: 100 MG?TAKE 1 TABLET BY ORAL ROUTE EVERYDAY AS NEEDED APPROXIMATELY ...
     Route: 048
  20. COLCHICINE [Concomitant]
     Active Substance: COLCHICINE
     Indication: Product used for unknown indication
     Dosage: 0.6 MG?TAKE 2 TABS ON FIRST DAY, THEN 1 TAB DAILY UNTIL SX RESOLVE AND CONTINUE ADDITIONAL FOR 3 ...
     Route: 048
  21. ALBUTEROL SULFATE [Concomitant]
     Active Substance: ALBUTEROL SULFATE
     Indication: Wheezing
     Dosage: HFA 90 MCG?INHALE 2 PUFF BY INHALATION ROUTE EVERY 4 TO 6 HOURS AS NEEDED AS FOR WHEEZING
  22. FLOVENT [Concomitant]
     Active Substance: FLUTICASONE PROPIONATE
     Indication: Product used for unknown indication
     Dosage: HFA 110 MCG?INHALE 1 SPRAY BY INTRANASAL ROUTE EVERYDAY IN EACH NOSTRIL
  23. DOXYCYCLINE HYCLATE [Concomitant]
     Active Substance: DOXYCYCLINE HYCLATE
     Indication: Product used for unknown indication
     Dosage: 20 MG?TAKE 2 TABLET TOGETHER ONCE DAILY FOR ROSACEA
  24. IRON [Concomitant]
     Active Substance: IRON
     Indication: Product used for unknown indication
  25. CYCLOBENZAPRINE [Concomitant]
     Active Substance: CYCLOBENZAPRINE
     Indication: Pain management
     Dosage: 10 MG?TAKE 1 TABLET BY ORAL ROUTE 3 TIMES EVERYDAY AS NEEDED FOR PAIN
     Route: 048
  26. VALACYCLOVIR HYDROCHLORIDE [Concomitant]
     Active Substance: VALACYCLOVIR HYDROCHLORIDE
     Indication: Product used for unknown indication
     Dosage: TAKE 1 TABLET BY ORAL ROUTE EVERY 12 HOURS
     Route: 048
  27. ZOLOFT [Concomitant]
     Active Substance: SERTRALINE HYDROCHLORIDE
     Indication: Product used for unknown indication
     Dosage: TAKE 1 TABLET BY ORAL ROUTE EVERYDAY
     Route: 048
  28. FINASTERIDE [Concomitant]
     Active Substance: FINASTERIDE
     Indication: Product used for unknown indication
     Dosage: 5 MG?TAKE 1 TABLET BY ORAL ROUTE EVERYDAY
     Route: 048
  29. AMLODIPINE BESYLATE\BENAZEPRIL HYDROCHLORIDE [Concomitant]
     Active Substance: AMLODIPINE BESYLATE\BENAZEPRIL HYDROCHLORIDE
     Indication: Product used for unknown indication
     Dosage: TAKE 1 CAPSULE BY ORAL ROUTE EVERYDAY?AMLODIPINE 2.5MG-BENAZEPRIL 10MG
     Route: 048

REACTIONS (75)
  - Bedridden [Recovered/Resolved]
  - Drug hypersensitivity [Unknown]
  - Trigger finger [Unknown]
  - Illness [Not Recovered/Not Resolved]
  - Atrial septal defect [Unknown]
  - Hepatic cancer [Unknown]
  - Feeling abnormal [Recovered/Resolved]
  - Hepatic enzyme increased [Unknown]
  - Scar [Unknown]
  - Alcohol abuse [Unknown]
  - Skin injury [Unknown]
  - Supraventricular extrasystoles [Unknown]
  - Skin ulcer [Unknown]
  - Essential hypertension [Unknown]
  - Auditory disorder [Unknown]
  - Emotional disorder [Unknown]
  - Lymphadenopathy [Unknown]
  - Skin disorder [Unknown]
  - Alopecia [Unknown]
  - Stress [Unknown]
  - Pain [Unknown]
  - Bone disorder [Not Recovered/Not Resolved]
  - Pallor [Unknown]
  - Visual impairment [Not Recovered/Not Resolved]
  - General physical health deterioration [Not Recovered/Not Resolved]
  - Oesophagitis [Not Recovered/Not Resolved]
  - Hepatocellular carcinoma [Recovering/Resolving]
  - Weight decreased [Not Recovered/Not Resolved]
  - Ulcer [Unknown]
  - Malaise [Unknown]
  - Immunodeficiency [Not Recovered/Not Resolved]
  - Impaired quality of life [Not Recovered/Not Resolved]
  - Feeling abnormal [Not Recovered/Not Resolved]
  - Fatigue [Unknown]
  - Liver disorder [Unknown]
  - Adverse drug reaction [Recovered/Resolved]
  - Oesophageal disorder [Unknown]
  - Aphonia [Not Recovered/Not Resolved]
  - Multi-organ disorder [Unknown]
  - Adverse drug reaction [Unknown]
  - Life expectancy shortened [Unknown]
  - Drug ineffective [Not Recovered/Not Resolved]
  - Paradoxical drug reaction [Unknown]
  - Dysuria [Unknown]
  - Sensation of foreign body [Unknown]
  - Dysphagia [Unknown]
  - Fall [Unknown]
  - Injury [Unknown]
  - Ammonia increased [Unknown]
  - Heart rate irregular [Unknown]
  - Temperature intolerance [Unknown]
  - Change of bowel habit [Unknown]
  - Pyrexia [Unknown]
  - Nasal congestion [Unknown]
  - Dizziness [Unknown]
  - Anxiety [Unknown]
  - Depression [Unknown]
  - Hepatic mass [Unknown]
  - Haemorrhoids [Unknown]
  - Cholelithiasis [Unknown]
  - Renal cyst [Unknown]
  - Hepatosplenomegaly [Unknown]
  - Tongue injury [Unknown]
  - Mental disorder [Unknown]
  - Tangentiality [Unknown]
  - Speech disorder [Unknown]
  - Chronic hepatitis C [Unknown]
  - Cirrhosis alcoholic [Unknown]
  - Rosacea [Unknown]
  - Generalised anxiety disorder [Unknown]
  - Skin atrophy [Unknown]
  - Rash [Unknown]
  - Hepatic cirrhosis [Not Recovered/Not Resolved]
  - Hepatic failure [Unknown]
  - Hepatic neoplasm [Unknown]

NARRATIVE: CASE EVENT DATE: 20190101
